FAERS Safety Report 4949512-2 (Version None)
Quarter: 2006Q1

REPORT INFORMATION
  Report Type: 
  Country: None (occurrence: None)
  Receive Date: 20060127
  Receipt Date: 20050202
  Transmission Date: 20060701
  Serious: Yes (Death)
  Sender: FDA-Public Use
  Company Number: 05-02-0166

PATIENT
  Age: 83 Year
  Sex: Female

DRUGS (1)
  1. CLOZAPINE [Suspect]
     Dosage: 87.5-150 MG QD ORAL
     Route: 048
     Dates: start: 20040601, end: 20050101

REACTIONS (1)
  - PRE-EXISTING DISEASE [None]
